FAERS Safety Report 11603510 (Version 1)
Quarter: 2015Q4

REPORT INFORMATION
  Report Type: Spontaneous
  Country: US (occurrence: None)
  Receive Date: 20151006
  Receipt Date: 20151006
  Transmission Date: 20160304
  Serious: No
  Sender: FDA-Public Use
  Company Number: None

PATIENT
  Sex: Male

DRUGS (17)
  1. LEVOTHYROXIN [Concomitant]
     Active Substance: LEVOTHYROXINE
  2. LISINOPRIL. [Concomitant]
     Active Substance: LISINOPRIL
  3. MELATONIN [Concomitant]
     Active Substance: MELATONIN
  4. CLONAZEPAM. [Concomitant]
     Active Substance: CLONAZEPAM
  5. VITAMIN B12 [Concomitant]
     Active Substance: CYANOCOBALAMIN
  6. ANTABUSE [Concomitant]
     Active Substance: DISULFIRAM
  7. CALCIUM D [Concomitant]
     Active Substance: CALCIUM\VITAMIN D
  8. ALLERGY RELIEF [Concomitant]
  9. MELATONIN [Concomitant]
     Active Substance: MELATONIN
  10. BUPROPION. [Concomitant]
     Active Substance: BUPROPION
  11. KLONOPIN [Concomitant]
     Active Substance: CLONAZEPAM
  12. GLEEVEC [Suspect]
     Active Substance: IMATINIB MESYLATE
     Indication: LEUKAEMIA
     Route: 048
     Dates: start: 20080310
  13. BENADRYL [Concomitant]
     Active Substance: DIPHENHYDRAMINE HYDROCHLORIDE
  14. OXYON/APAP [Concomitant]
  15. CLALIS [Concomitant]
  16. LOPERAMIDE [Concomitant]
     Active Substance: LOPERAMIDE
  17. LYRICIA [Concomitant]

REACTIONS (3)
  - Arachnoiditis [None]
  - Depression [None]
  - Diarrhoea [None]
